FAERS Safety Report 5408886-9 (Version None)
Quarter: 2007Q3

REPORT INFORMATION
  Report Type: 
  Country: None (occurrence: None)
  Receive Date: 20070808
  Receipt Date: 20070806
  Transmission Date: 20080115
  Serious: Yes (Death)
  Sender: FDA-Public Use
  Company Number: GB-ROXANE LABORATORIES, INC-2007-UK-02250UK

PATIENT
  Age: 84 Year
  Sex: Male

DRUGS (1)
  1. ORAMORPH SR [Suspect]
     Indication: CARCINOID TUMOUR OF THE STOMACH
     Dosage: 100 MG/5 ML
     Route: 048

REACTIONS (1)
  - ACCIDENTAL OVERDOSE [None]
